FAERS Safety Report 7634629-4 (Version None)
Quarter: 2011Q3

REPORT INFORMATION
  Report Type: 
  Country: None (occurrence: None)
  Receive Date: 20110725
  Receipt Date: 20110720
  Transmission Date: 20111222
  Serious: Yes (Death)
  Sender: FDA-Public Use
  Company Number: PH-MERCK-1107USA02516

PATIENT
  Age: 70 Year
  Sex: Male

DRUGS (2)
  1. PRIMAXIN [Suspect]
     Route: 051
     Dates: start: 20100101, end: 20100101
  2. PRIMAXIN [Suspect]
     Indication: SEPSIS
     Route: 051
     Dates: start: 20100101, end: 20100101

REACTIONS (3)
  - BLOOD CREATININE INCREASED [None]
  - DEATH [None]
  - THROMBOCYTOPENIA [None]
